FAERS Safety Report 10051867 (Version 2)
Quarter: 2014Q3

REPORT INFORMATION
  Report Type: Spontaneous
  Country: FR (occurrence: FR)
  Receive Date: 20140402
  Receipt Date: 20140710
  Transmission Date: 20150326
  Serious: Yes (Life-Threatening, Hospitalization, Congenital Anomaly)
  Sender: FDA-Public Use
  Company Number: FR-009507513-1403FRA012235

PATIENT
  Age: 1 Day
  Sex: Male
  Weight: 3.2 kg

DRUGS (4)
  1. INEGY [Suspect]
     Active Substance: EZETIMIBE\SIMVASTATIN
     Indication: HYPERCHOLESTEROLAEMIA
     Dosage: UNK
     Route: 064
     Dates: start: 20120115, end: 20120215
  2. HYDROCHLOROTHIAZIDE\VALSARTAN [Concomitant]
     Active Substance: HYDROCHLOROTHIAZIDE\VALSARTAN
     Indication: HYPERTENSION
     Dosage: UNK
     Route: 064
     Dates: start: 20120115, end: 20120215
  3. METFORMIN [Suspect]
     Active Substance: METFORMIN HYDROCHLORIDE
     Indication: DIABETES MELLITUS
     Dosage: 500 MG, BID
     Route: 064
     Dates: start: 20120115, end: 20120215
  4. DAONIL [Suspect]
     Active Substance: GLYBURIDE
     Indication: DIABETES MELLITUS
     Dosage: 10 MG, QD
     Route: 064
     Dates: start: 20120115, end: 20120215

REACTIONS (2)
  - Foetal exposure during pregnancy [Recovered/Resolved]
  - Transposition of the great vessels [Recovered/Resolved]

NARRATIVE: CASE EVENT DATE: 20130927
